FAERS Safety Report 8657490 (Version 2)
Quarter: 2012Q4

REPORT INFORMATION
  Report Type: 
  Country: TW (occurrence: TW)
  Receive Date: 20120710
  Receipt Date: 20121023
  Transmission Date: 20130627
  Serious: Yes (Hospitalization, Other)
  Sender: FDA-Public Use
  Company Number: PHHY2012TW058046

PATIENT
  Age: 93 Year
  Sex: Male

DRUGS (1)
  1. ZOMETA [Suspect]
     Dosage: 4 mg, UNK
     Route: 042
     Dates: start: 20080822, end: 20110826

REACTIONS (1)
  - Osteonecrosis of jaw [Recovered/Resolved]
